FAERS Safety Report 6520506-9 (Version None)
Quarter: 2009Q4

REPORT INFORMATION
  Report Type: 
  Country: None (occurrence: None)
  Receive Date: 20091229
  Receipt Date: 20091221
  Transmission Date: 20100525
  Serious: Yes (Hospitalization)
  Sender: FDA-Public Use
  Company Number: B0612655A

PATIENT
  Sex: Female
  Weight: 86.8 kg

DRUGS (2)
  1. LAPATINIB [Suspect]
     Dosage: 1500MG PER DAY
     Route: 048
     Dates: start: 20090909, end: 20091121
  2. CAELYX [Suspect]
     Dosage: 45MGM2 CYCLIC
     Route: 042
     Dates: start: 20090909, end: 20091104

REACTIONS (4)
  - PALMAR-PLANTAR ERYTHRODYSAESTHESIA SYNDROME [None]
  - PRURITUS [None]
  - SKIN DISORDER [None]
  - SKIN LESION [None]
